FAERS Safety Report 7537327-0 (Version None)
Quarter: 2011Q2

REPORT INFORMATION
  Report Type: 
  Country: None (occurrence: None)
  Receive Date: 20110609
  Receipt Date: 20110603
  Transmission Date: 20111010
  Serious: Yes (Hospitalization)
  Sender: FDA-Public Use
  Company Number: FR-PFIZER INC-2011123715

PATIENT
  Age: 40 Year
  Sex: Female

DRUGS (3)
  1. AERIUS [Concomitant]
     Dosage: UNK
     Dates: start: 20110513
  2. CEFPODOXIME PROXETIL [Suspect]
     Indication: PHARYNGITIS
     Dosage: UNK
     Route: 048
     Dates: start: 20110513, end: 20110513
  3. PREDNISOLONE [Suspect]
     Indication: PHARYNGITIS
     Dosage: UNK
     Route: 048
     Dates: start: 20110513, end: 20110516

REACTIONS (4)
  - LIP OEDEMA [None]
  - URTICARIA [None]
  - HYPERSENSITIVITY [None]
  - DYSPHAGIA [None]
